FAERS Safety Report 4761456-8 (Version None)
Quarter: 2005Q3

REPORT INFORMATION
  Report Type: 
  Country: None (occurrence: None)
  Receive Date: 20050906
  Receipt Date: 20050826
  Transmission Date: 20060218
  Serious: Yes (Other)
  Sender: FDA-Public Use
  Company Number: PHBS2005BR12783

PATIENT
  Age: 40 Year
  Sex: Female

DRUGS (2)
  1. OCTREOTIDE ACETATE [Suspect]
     Indication: ACROMEGALY
     Dosage: 100 UG, TID
     Route: 065
  2. OCTREOTIDE ACETATE [Suspect]
     Dosage: 900 UG/DAY
     Route: 065

REACTIONS (2)
  - DRUG DEPENDENCE [None]
  - HEADACHE [None]
